FAERS Safety Report 18349314 (Version 6)
Quarter: 2025Q4

REPORT INFORMATION
  Report Type: Report from Study
  Country: CO (occurrence: CO)
  Receive Date: 20201006
  Receipt Date: 20251002
  Transmission Date: 20260117
  Serious: Yes (Other)
  Sender: TAKEDA
  Company Number: CO-TAKEDA-2019TUS059858

PATIENT
  Age: 43 Year
  Sex: Female
  Weight: 49 kg

DRUGS (3)
  1. VEDOLIZUMAB [Suspect]
     Active Substance: VEDOLIZUMAB
     Indication: Colitis ulcerative
     Dosage: 300 MILLIGRAM
  2. Uroxacin [Concomitant]
     Dosage: 200 MILLIGRAM, Q8HR
  3. PREDNISONE [Concomitant]
     Active Substance: PREDNISONE
     Dosage: 5 MILLIGRAM, Q8HR

REACTIONS (10)
  - Haematochezia [Recovered/Resolved]
  - Diarrhoea [Not Recovered/Not Resolved]
  - Weight fluctuation [Unknown]
  - Treatment noncompliance [Unknown]
  - Weight increased [Unknown]
  - Body height decreased [Unknown]
  - Urinary tract infection [Not Recovered/Not Resolved]
  - Ear pain [Recovered/Resolved]
  - Chills [Recovered/Resolved]
  - Abdominal pain [Recovered/Resolved]

NARRATIVE: CASE EVENT DATE: 20191015
